FAERS Safety Report 24072714 (Version 1)
Quarter: 2024Q3

REPORT INFORMATION
  Report Type: Spontaneous
  Country: BE (occurrence: BE)
  Receive Date: 20240710
  Receipt Date: 20240710
  Transmission Date: 20241017
  Serious: Yes (Death, Other)
  Sender: STRIDES
  Company Number: BE-STRIDES ARCOLAB LIMITED-2024SP008126

PATIENT
  Age: 30 Year
  Sex: Female

DRUGS (15)
  1. PREDNISOLONE [Suspect]
     Active Substance: PREDNISOLONE
     Indication: Triple negative breast cancer
     Dosage: UNK, CYCLICAL (CMF-VP CHEMOTHERAPY FOR 1 CYCLE)
     Route: 065
  2. METHOTREXATE [Suspect]
     Active Substance: METHOTREXATE
     Indication: Triple negative breast cancer
     Dosage: UNK, CYCLICAL (TRIPLE NEGATIVE BREAST CANCER METASTATIC)
     Route: 065
  3. EPIRUBICIN [Suspect]
     Active Substance: EPIRUBICIN
     Indication: Triple negative breast cancer
     Dosage: UNK, CYCLICAL (FOR 1 CYCLE )
     Route: 065
  4. CYCLOPHOSPHAMIDE [Suspect]
     Active Substance: CYCLOPHOSPHAMIDE
     Indication: Triple negative breast cancer
     Dosage: UNK, CYCLICAL (CMF-VP CHEMOTHERAPY FOR 1 CYCLE)
     Route: 065
  5. FLUOROURACIL [Suspect]
     Active Substance: FLUOROURACIL
     Indication: Triple negative breast cancer
     Dosage: UNK, CYCLICAL (CMF-VP CHEMOTHERAPY FOR 1 CYCLE))
     Route: 065
  6. FLUOROURACIL [Suspect]
     Active Substance: FLUOROURACIL
     Dosage: UNK, CYCLICAL (FOR 2 CYCLES)
     Route: 065
  7. VINCRISTINE [Suspect]
     Active Substance: VINCRISTINE
     Indication: Triple negative breast cancer
     Dosage: UNK, CYCLICAL (CMF-VP CHEMOTHERAPY FOR 1 CYCLE)
     Route: 065
  8. PIQRAY [Suspect]
     Active Substance: ALPELISIB
     Indication: Triple negative breast cancer
     Dosage: 300 MILLIGRAM, QD
     Route: 065
  9. PIQRAY [Suspect]
     Active Substance: ALPELISIB
     Dosage: 200 MILLIGRAM, QD
     Route: 065
  10. VINORELBINE [Suspect]
     Active Substance: VINORELBINE TARTRATE
     Indication: Triple negative breast cancer
     Dosage: UNK, CYCLICAL (FOR 2 CYCLES)
     Route: 065
  11. ATEZOLIZUMAB [Suspect]
     Active Substance: ATEZOLIZUMAB
     Indication: Triple negative breast cancer
     Dosage: UNK, CYCLICAL (FOR 4 CYCLES)
     Route: 065
  12. ATEZOLIZUMAB [Suspect]
     Active Substance: ATEZOLIZUMAB
     Dosage: UNK, CYCLICAL (MAINTENANCE DOSE FOR 3 CYCLES)
     Route: 065
  13. BEVACIZUMAB [Suspect]
     Active Substance: BEVACIZUMAB
     Indication: Triple negative breast cancer
     Dosage: UNK, CYCLICAL (MAINTENANCE DOSE FOR 3 CYCLES)
     Route: 065
  14. PACLITAXEL [Suspect]
     Active Substance: PACLITAXEL
     Indication: Triple negative breast cancer
     Dosage: UNK, CYCLICAL (FOR 4 CYCLES)
     Route: 065
  15. CARBOPLATIN [Suspect]
     Active Substance: CARBOPLATIN
     Indication: Triple negative breast cancer
     Dosage: UNK, CYCLICAL (FOR 4 CYCLES)
     Route: 065

REACTIONS (4)
  - Death [Fatal]
  - Drug ineffective [Unknown]
  - Malignant neoplasm progression [Not Recovered/Not Resolved]
  - Off label use [Unknown]
